FAERS Safety Report 20551786 (Version 2)
Quarter: 2022Q1

REPORT INFORMATION
  Report Type: Spontaneous
  Country: CO (occurrence: CO)
  Receive Date: 20220304
  Receipt Date: 20220316
  Transmission Date: 20220423
  Serious: Yes (Other)
  Sender: FDA-Public Use
  Company Number: CO-PFIZER INC-202200327049

PATIENT
  Age: 58 Year
  Sex: Female

DRUGS (2)
  1. LYRICA [Suspect]
     Active Substance: PREGABALIN
     Indication: Anxiety disorder
     Dosage: 75 MG
     Route: 048
     Dates: start: 20201111
  2. LYRICA [Suspect]
     Active Substance: PREGABALIN
     Indication: Depression

REACTIONS (6)
  - COVID-19 [Recovering/Resolving]
  - Discomfort [Recovering/Resolving]
  - Cough [Not Recovered/Not Resolved]
  - Influenza [Recovering/Resolving]
  - Pain [Recovering/Resolving]
  - Off label use [Unknown]

NARRATIVE: CASE EVENT DATE: 20201111
